FAERS Safety Report 7023627-X (Version None)
Quarter: 2010Q3

REPORT INFORMATION
  Report Type: 
  Country: None (occurrence: None)
  Receive Date: 20100930
  Receipt Date: 20100930
  Transmission Date: 20110219
  Serious: Yes (Other)
  Sender: FDA-Public Use
  Company Number: None

PATIENT
  Sex: Female
  Weight: 73.2 kg

DRUGS (8)
  1. SAPHRIS [Suspect]
     Indication: BIPOLAR DISORDER
     Dosage: 5 MG 8/3-8/5; 10 MG 8/6/8/24
  2. LORAZEPAM [Concomitant]
  3. QUETIAPINE [Suspect]
  4. MILK OF MAGNESIA TAB [Concomitant]
  5. BENZTROPINE MESYLATE [Concomitant]
  6. HALOPERIDOL [Concomitant]
  7. MIRALAX [Concomitant]
  8. GEODON [Suspect]

REACTIONS (6)
  - AKATHISIA [None]
  - EXTRAPYRAMIDAL DISORDER [None]
  - FALL [None]
  - SYNCOPE [None]
  - THERAPEUTIC RESPONSE DECREASED [None]
  - TREMOR [None]
